FAERS Safety Report 17220169 (Version 1)
Quarter: 2019Q4

REPORT INFORMATION
  Report Type: Spontaneous
  Country: DK (occurrence: DK)
  Receive Date: 20191231
  Receipt Date: 20191231
  Transmission Date: 20200122
  Serious: Yes (Hospitalization)
  Sender: FDA-Public Use
  Company Number: DK-SCILEX PHARMACEUTICALS INC.-2019SCX00086

PATIENT
  Age: 63 Year
  Sex: Female

DRUGS (5)
  1. INSTILLAGEL [Suspect]
     Active Substance: CHLORHEXIDINE GLUCONATE\LIDOCAINE HYDROCHLORIDE
     Indication: ENDOTRACHEAL INTUBATION
     Route: 007
  2. DEXAMETHASONE. [Concomitant]
     Active Substance: DEXAMETHASONE
     Route: 042
  3. LIDOCAINE/PHENYLEPHRINE [Suspect]
     Active Substance: LIDOCAINE\PHENYLEPHRINE
     Route: 045
  4. ALFENTANIL. [Concomitant]
     Active Substance: ALFENTANIL
     Route: 065
  5. EYE OINTMENT WITH PARAFFIN OIL [Concomitant]

REACTIONS (2)
  - Anaphylactic reaction [Recovered/Resolved]
  - Hypersensitivity [Recovered/Resolved]
